FAERS Safety Report 8063336-1 (Version None)
Quarter: 2012Q1

REPORT INFORMATION
  Report Type: 
  Country: None (occurrence: None)
  Receive Date: 20120123
  Receipt Date: 20120113
  Transmission Date: 20120608
  Serious: Yes (Hospitalization)
  Sender: FDA-Public Use
  Company Number: IT-EISAI INC-E3810-05242-SPO-IT

PATIENT
  Sex: Male

DRUGS (5)
  1. IRESSA [Suspect]
     Indication: ADENOCARCINOMA
     Route: 048
     Dates: start: 20110120
  2. INDOMETHACIN [Concomitant]
     Route: 048
  3. MINOCYCLINE HCL [Suspect]
     Indication: FOLLICULITIS
     Route: 048
     Dates: start: 20111113
  4. RABEPRAZOLE SODIUM [Suspect]
     Indication: PROPHYLAXIS AGAINST GASTROINTESTINAL ULCER
     Route: 048
     Dates: start: 20110120, end: 20111115
  5. ARIXTRA [Suspect]
     Indication: DEEP VEIN THROMBOSIS
     Dosage: 5 MG/ML
     Route: 058
     Dates: start: 20110120

REACTIONS (4)
  - HYPERAMYLASAEMIA [None]
  - VOMITING [None]
  - NAUSEA [None]
  - HYPERBILIRUBINAEMIA [None]
